FAERS Safety Report 12617145 (Version 3)
Quarter: 2016Q3

REPORT INFORMATION
  Report Type: Spontaneous
  Country: US (occurrence: US)
  Receive Date: 20160803
  Receipt Date: 20160808
  Transmission Date: 20161109
  Serious: No
  Sender: FDA-Public Use
  Company Number: US-BEH-2016061559

PATIENT
  Sex: Female
  Weight: 86 kg

DRUGS (21)
  1. HIZENTRA [Suspect]
     Active Substance: HUMAN IMMUNOGLOBULIN G
     Indication: CONGENITAL HYPOGAMMAGLOBULINAEMIA
     Route: 058
  2. DIPHENHYDRAMINE. [Concomitant]
     Active Substance: DIPHENHYDRAMINE
  3. FLUTICASONE [Concomitant]
     Active Substance: FLUTICASONE\FLUTICASONE PROPIONATE
  4. LEVOTHYROXINE. [Concomitant]
     Active Substance: LEVOTHYROXINE
  5. EPIPEN [Concomitant]
     Active Substance: EPINEPHRINE
  6. XOPENEX [Concomitant]
     Active Substance: LEVALBUTEROL HYDROCHLORIDE
  7. ASPIRIN. [Concomitant]
     Active Substance: ASPIRIN
  8. SYMBICORT [Concomitant]
     Active Substance: BUDESONIDE\FORMOTEROL FUMARATE DIHYDRATE
  9. LEXAPRO [Concomitant]
     Active Substance: ESCITALOPRAM OXALATE
  10. LIPITOR [Concomitant]
     Active Substance: ATORVASTATIN CALCIUM
  11. POTASSIUM [Concomitant]
     Active Substance: POTASSIUM
  12. LIDOCAINE/PRILOCAINE [Concomitant]
     Active Substance: LIDOCAINE\PRILOCAINE
  13. HIZENTRA [Suspect]
     Active Substance: HUMAN IMMUNOGLOBULIN G
     Route: 058
  14. COENZYME Q-10 [Concomitant]
  15. ZINC [Concomitant]
     Active Substance: ZINC\ZINC CHLORIDE
  16. LIDOCAINE. [Concomitant]
     Active Substance: LIDOCAINE
  17. CALCIUM+D [Concomitant]
     Active Substance: CALCIUM\VITAMIN D
  18. VITAMIN D [Concomitant]
     Active Substance: CHOLECALCIFEROL
  19. HIZENTRA [Suspect]
     Active Substance: HUMAN IMMUNOGLOBULIN G
     Route: 058
  20. ACETAMINOPHEN. [Concomitant]
     Active Substance: ACETAMINOPHEN
  21. HCTZ [Concomitant]
     Active Substance: HYDROCHLOROTHIAZIDE

REACTIONS (1)
  - Sinusitis [Recovering/Resolving]
